FAERS Safety Report 10547723 (Version 1)
Quarter: 2014Q4

REPORT INFORMATION
  Report Type: Spontaneous
  Country: FR (occurrence: None)
  Receive Date: 20141024
  Receipt Date: 20141024
  Transmission Date: 20150529
  Serious: Yes (Hospitalization)
  Sender: FDA-Public Use
  Company Number: FK201404408

PATIENT
  Age: 70 Year
  Sex: Female

DRUGS (3)
  1. PACLITAXEL. [Suspect]
     Active Substance: PACLITAXEL
     Indication: METASTASES TO PERITONEUM
     Route: 042
     Dates: start: 20140523, end: 20140523
  2. OROKEN (CEFIXIME) [Concomitant]
  3. CARBOPLATIN. [Suspect]
     Active Substance: CARBOPLATIN
     Indication: METASTASES TO PERITONEUM
     Route: 042
     Dates: start: 20140523, end: 20140523

REACTIONS (2)
  - Hypersensitivity [None]
  - Dermatitis exfoliative [None]

NARRATIVE: CASE EVENT DATE: 20140523
